FAERS Safety Report 9569097 (Version 1)
Quarter: 2013Q3

REPORT INFORMATION
  Report Type: Spontaneous
  Country: US (occurrence: US)
  Receive Date: 20130930
  Receipt Date: 20130930
  Transmission Date: 20140515
  Serious: No
  Sender: FDA-Public Use
  Company Number: US-AMGEN-USASP2013060537

PATIENT
  Age: 51 Year
  Sex: Female

DRUGS (11)
  1. ENBREL [Suspect]
     Indication: PRODUCT USED FOR UNKNOWN INDICATION
     Dosage: 50 MG, QWK
     Route: 058
  2. REQUIP [Concomitant]
     Dosage: 1 MG, UNK
  3. PRISTIQ [Concomitant]
     Dosage: 100 MG, UNK
  4. HUMIRA [Concomitant]
     Dosage: 40 MG/0.8, UNK
  5. TRAZODONE [Concomitant]
     Dosage: 50 MG, UNK
  6. HYDROXYCHLOROQUINE [Concomitant]
     Dosage: 200 MG, UNK
  7. LEVOTHYROXIN [Concomitant]
     Dosage: 112 MU, UNK
  8. ACID REDUCER                       /00397401/ [Concomitant]
     Dosage: 10 MG, UNK
  9. TYLENOL ARTHRITIS [Concomitant]
     Dosage: 650 MG, UNK
  10. TYLENOL PM EXTRA STRENGTH [Concomitant]
     Dosage: UNK
  11. VITAMIN D                          /00107901/ [Concomitant]
     Dosage: 1000 UNIT, UNK

REACTIONS (1)
  - Therapeutic response decreased [Unknown]
